FAERS Safety Report 5715930-8 (Version None)
Quarter: 2008Q2

REPORT INFORMATION
  Report Type: 
  Country: None (occurrence: None)
  Receive Date: 20080423
  Receipt Date: 20080423
  Transmission Date: 20081010
  Serious: Yes (Disabling)
  Sender: FDA-Public Use
  Company Number: None

PATIENT
  Age: 60 Year
  Sex: Female

DRUGS (3)
  1. JANUVIA [Suspect]
     Indication: DIABETES MELLITUS
     Dosage: 25MG QD PO
     Route: 048
  2. JANUVIA [Suspect]
     Indication: MITRAL VALVE REPLACEMENT
     Dosage: 25MG QD PO
     Route: 048
  3. JANTOVEN [Suspect]
     Indication: AORTIC VALVE REPLACEMENT
     Dosage: 1.5-6 MG QD PO
     Route: 048

REACTIONS (2)
  - INTERNATIONAL NORMALISED RATIO DECREASED [None]
  - WRONG DRUG ADMINISTERED [None]
